FAERS Safety Report 22263432 (Version 1)
Quarter: 2023Q2

REPORT INFORMATION
  Report Type: Spontaneous
  Country: PT (occurrence: PT)
  Receive Date: 20230428
  Receipt Date: 20230428
  Transmission Date: 20230721
  Serious: Yes (Death, Disabling, Other)
  Sender: FDA-Public Use
  Company Number: PT-EMA-DD-20230418-225467-092253

PATIENT

DRUGS (3)
  1. TRAMADOL HYDROCHLORIDE [Suspect]
     Active Substance: TRAMADOL HYDROCHLORIDE
     Indication: Cancer pain
     Dosage: UNK
     Route: 065
  2. ACETAMINOPHEN [Suspect]
     Active Substance: ACETAMINOPHEN
     Indication: Cancer pain
     Dosage: UNK
     Route: 065
  3. METOCLOPRAMIDE [Suspect]
     Active Substance: METOCLOPRAMIDE
     Indication: Pain
     Dosage: UNK
     Route: 065

REACTIONS (7)
  - Pleural mesothelioma [Fatal]
  - Gait inability [Unknown]
  - Pain [Unknown]
  - Decreased appetite [Unknown]
  - Breath sounds abnormal [Unknown]
  - Constipation [Unknown]
  - Drug ineffective [Unknown]
